FAERS Safety Report 6963988-0 (Version None)
Quarter: 2010Q3

REPORT INFORMATION
  Report Type: 
  Country: None (occurrence: None)
  Receive Date: 20100902
  Receipt Date: 20100902
  Transmission Date: 20110219
  Serious: Yes (Disabling, Other)
  Sender: FDA-Public Use
  Company Number: None

PATIENT
  Sex: Female
  Weight: 52.6173 kg

DRUGS (1)
  1. VENLAFAXINE HCL EXTENDED-RELEASE [Suspect]
     Indication: BIPOLAR DISORDER
     Dosage: 75MG ONE DAILY (MADE BY TEVA)
     Dates: start: 20100811, end: 20100823

REACTIONS (8)
  - BIPOLAR I DISORDER [None]
  - GAIT DISTURBANCE [None]
  - IMPAIRED WORK ABILITY [None]
  - INSOMNIA [None]
  - MYDRIASIS [None]
  - PANIC ATTACK [None]
  - PARANOIA [None]
  - PRODUCT SUBSTITUTION ISSUE [None]
